FAERS Safety Report 5068986-2 (Version None)
Quarter: 2006Q3

REPORT INFORMATION
  Report Type: 
  Country: None (occurrence: None)
  Receive Date: 20060801
  Receipt Date: 20060801
  Transmission Date: 20061208
  Serious: Yes (Life-Threatening, Other)
  Sender: FDA-Public Use
  Company Number: None

PATIENT
  Age: 23 Year
  Sex: Female
  Weight: 53.5244 kg

DRUGS (2)
  1. CELEXA [Suspect]
     Indication: INSOMNIA
     Dosage: 20 MGS DAILY PO
     Route: 048
     Dates: start: 20060214, end: 20060317
  2. NUVARING [Concomitant]

REACTIONS (10)
  - ABNORMAL BEHAVIOUR [None]
  - ADVERSE EVENT [None]
  - AGGRESSION [None]
  - AGITATION [None]
  - INTENTIONAL SELF-INJURY [None]
  - OBSESSIVE THOUGHTS [None]
  - SELF MUTILATION [None]
  - SUICIDAL IDEATION [None]
  - THINKING ABNORMAL [None]
  - VERBAL ABUSE [None]
